FAERS Safety Report 7386314-4 (Version None)
Quarter: 2011Q1

REPORT INFORMATION
  Report Type: 
  Country: None (occurrence: None)
  Receive Date: 20110331
  Receipt Date: 20110317
  Transmission Date: 20110831
  Serious: Yes (Other)
  Sender: FDA-Public Use
  Company Number: PHHY2011US20603

PATIENT
  Sex: Female
  Weight: 67.574 kg

DRUGS (5)
  1. K-DUR [Concomitant]
     Dosage: 20 MG
     Route: 048
  2. AMLODIPINE BESYLATE [Concomitant]
     Dosage: 20 MG
     Route: 048
  3. RECLAST [Suspect]
     Indication: OSTEOPOROSIS
     Dosage: 5 MG/100ML
     Route: 042
     Dates: start: 20100321
  4. OMEPRAZOLE [Concomitant]
     Indication: GASTRITIS
     Dosage: 40 MG
     Route: 048
  5. LISINOPRIL [Concomitant]
     Indication: HYPERTENSION

REACTIONS (1)
  - HIP FRACTURE [None]
